FAERS Safety Report 5277160-6 (Version None)
Quarter: 2007Q1

REPORT INFORMATION
  Report Type: 
  Country: None (occurrence: None)
  Receive Date: 20061213
  Receipt Date: 20050228
  Transmission Date: 20070707
  Serious: No
  Sender: FDA-Public Use
  Company Number: 2004UW21530

PATIENT
  Age: 48 Year
  Sex: Female

DRUGS (4)
  1. SEROQUEL [Suspect]
     Indication: BIPOLAR DISORDER
     Dosage: 100 MG BID PO
     Route: 048
     Dates: start: 20030801, end: 20041001
  2. WELLBUTRIN [Concomitant]
  3. LAMICTAL ^BURROUGHS WELLCOME^ [Concomitant]
  4. TRAZODONE HCL [Concomitant]

REACTIONS (1)
  - CATARACT [None]
